FAERS Safety Report 20764375 (Version 4)
Quarter: 2024Q3

REPORT INFORMATION
  Report Type: Spontaneous
  Country: JP (occurrence: JP)
  Receive Date: 20220428
  Receipt Date: 20240913
  Transmission Date: 20241017
  Serious: Yes (Hospitalization, Disabling, Other)
  Sender: BRISTOL MYERS SQUIBB
  Company Number: JP-BRISTOL-MYERS SQUIBB COMPANY-2022-026313

PATIENT
  Age: 77 Year
  Sex: Female
  Weight: 40 kg

DRUGS (9)
  1. VIDAZA [Suspect]
     Active Substance: AZACITIDINE
     Indication: Acute myeloid leukaemia
     Route: 041
     Dates: start: 20211129
  2. VIDAZA [Suspect]
     Active Substance: AZACITIDINE
     Route: 041
  3. VIDAZA [Suspect]
     Active Substance: AZACITIDINE
     Route: 041
     Dates: end: 20211205
  4. VIDAZA [Suspect]
     Active Substance: AZACITIDINE
     Route: 041
     Dates: start: 20220301
  5. VENETOCLAX [Suspect]
     Active Substance: VENETOCLAX
     Indication: Acute myeloid leukaemia
     Route: 048
     Dates: start: 20211130, end: 20220110
  6. VENETOCLAX [Suspect]
     Active Substance: VENETOCLAX
     Route: 048
     Dates: start: 20211129, end: 20211129
  7. VENETOCLAX [Suspect]
     Active Substance: VENETOCLAX
     Route: 048
     Dates: start: 20211130, end: 20211130
  8. VENETOCLAX [Suspect]
     Active Substance: VENETOCLAX
     Route: 048
     Dates: start: 20211201, end: 20211222
  9. FLUCONAZOLE [Concomitant]
     Active Substance: FLUCONAZOLE
     Indication: Infection prophylaxis
     Dates: start: 20211130

REACTIONS (6)
  - Visual acuity reduced [Recovering/Resolving]
  - Aspergillus infection [Recovered/Resolved with Sequelae]
  - Pancytopenia [Recovered/Resolved]
  - Blindness unilateral [Unknown]
  - Sinusitis [Recovered/Resolved with Sequelae]
  - Cellulitis orbital [Recovered/Resolved with Sequelae]

NARRATIVE: CASE EVENT DATE: 20211213
